FAERS Safety Report 15260990 (Version 3)
Quarter: 2018Q3

REPORT INFORMATION
  Report Type: Spontaneous
  Country: JP (occurrence: JP)
  Receive Date: 20180809
  Receipt Date: 20180830
  Transmission Date: 20181010
  Serious: Yes (Other)
  Sender: FDA-Public Use
  Company Number: JP-VIIV HEALTHCARE LIMITED-JP2018JPN142741

PATIENT
  Sex: Male

DRUGS (1)
  1. TRIUMEQ [Suspect]
     Active Substance: ABACAVIR SULFATE\DOLUTEGRAVIR SODIUM\LAMIVUDINE
     Indication: HIV INFECTION
     Dosage: UNK
     Route: 048
     Dates: start: 201711, end: 201808

REACTIONS (5)
  - Drug resistance [Unknown]
  - Treatment noncompliance [Unknown]
  - Hepatitis A [Unknown]
  - Blood HIV RNA increased [Not Recovered/Not Resolved]
  - HIV infection [Unknown]

NARRATIVE: CASE EVENT DATE: 201804
